FAERS Safety Report 4558171-2 (Version None)
Quarter: 2005Q1

REPORT INFORMATION
  Report Type: 
  Country: None (occurrence: None)
  Receive Date: 20050103
  Receipt Date: 20041029
  Transmission Date: 20050727
  Serious: Yes (Other)
  Sender: FDA-Public Use
  Company Number: 2004UW22396

PATIENT
  Age: 57 Year
  Sex: Female

DRUGS (5)
  1. CRESTOR [Suspect]
     Indication: BLOOD CHOLESTEROL INCREASED
     Dates: start: 20040701, end: 20040810
  2. INSULIN [Concomitant]
  3. EFFEXOR [Concomitant]
  4. ACCUPRIL [Concomitant]
  5. ARTHROTEC [Concomitant]

REACTIONS (1)
  - ANGLE CLOSURE GLAUCOMA [None]
